FAERS Safety Report 17073604 (Version 2)
Quarter: 2019Q4

REPORT INFORMATION
  Report Type: Report from Study
  Country: US (occurrence: US)
  Receive Date: 20191126
  Receipt Date: 20191224
  Transmission Date: 20200122
  Serious: Yes (Hospitalization)
  Sender: FDA-Public Use
  Company Number: US-ACTELION-A-US2018-183436

PATIENT
  Age: 79 Year
  Sex: Male

DRUGS (3)
  1. OPSUMIT [Suspect]
     Active Substance: MACITENTAN
     Indication: PULMONARY ARTERIAL HYPERTENSION
  2. OPSUMIT [Suspect]
     Active Substance: MACITENTAN
     Indication: CHRONIC OBSTRUCTIVE PULMONARY DISEASE
     Dosage: 10 MG, QD
     Route: 048
     Dates: start: 20180825
  3. KETOCONAZOLE. [Concomitant]
     Active Substance: KETOCONAZOLE

REACTIONS (6)
  - Urinary tract infection [Unknown]
  - Constipation [Unknown]
  - Heart rate increased [Not Recovered/Not Resolved]
  - Hospitalisation [Unknown]
  - Fungal infection [Unknown]
  - Dysuria [Unknown]

NARRATIVE: CASE EVENT DATE: 201811
